FAERS Safety Report 4287686-X (Version None)
Quarter: 2004Q1

REPORT INFORMATION
  Report Type: 
  Country: None (occurrence: None)
  Receive Date: 20040209
  Receipt Date: 20030820
  Transmission Date: 20041129
  Serious: No
  Sender: FDA-Public Use
  Company Number: US-GLAXOSMITHKLINE-A0424040A

PATIENT

DRUGS (1)
  1. PAXIL CR [Suspect]

REACTIONS (1)
  - FLATULENCE [None]
